FAERS Safety Report 6853645-3 (Version None)
Quarter: 2010Q3

REPORT INFORMATION
  Report Type: 
  Country: None (occurrence: None)
  Receive Date: 20100717
  Receipt Date: 20071214
  Transmission Date: 20110219
  Serious: No
  Sender: FDA-Public Use
  Company Number: US-PFIZER INC-2007106651

PATIENT
  Sex: Male
  Weight: 104.54 kg

DRUGS (16)
  1. CHANTIX [Suspect]
     Indication: SMOKING CESSATION THERAPY
     Route: 048
     Dates: start: 20071210
  2. DEPAKOTE [Concomitant]
  3. LEXAPRO [Concomitant]
  4. TRAZODONE HYDROCHLORIDE [Concomitant]
  5. ZYPREXA [Concomitant]
  6. KLONOPIN [Concomitant]
  7. MUSCLE RELAXANTS [Concomitant]
  8. NIACIN [Concomitant]
  9. MULTI-VITAMINS [Concomitant]
  10. OXYBUTYNIN CHLORIDE [Concomitant]
  11. SIMVASTATIN [Concomitant]
  12. CARISOPRODOL [Concomitant]
  13. PLAVIX [Concomitant]
  14. ACETYLSALICYLIC ACID [Concomitant]
  15. NYSTATIN [Concomitant]
  16. FLUTICASONE [Concomitant]

REACTIONS (1)
  - MOOD SWINGS [None]
